FAERS Safety Report 6303679-2 (Version None)
Quarter: 2009Q3

REPORT INFORMATION
  Report Type: 
  Country: None (occurrence: None)
  Receive Date: 20090807
  Receipt Date: 20090807
  Transmission Date: 20100115
  Serious: Yes (Hospitalization)
  Sender: FDA-Public Use
  Company Number: None

PATIENT
  Sex: Male
  Weight: 66.3159 kg

DRUGS (3)
  1. OXALIPLATIN [Suspect]
     Indication: LIVER DISORDER
     Dosage: Q15DAYS IV
     Route: 042
     Dates: start: 20090615, end: 20090727
  2. CAPECITABINE [Suspect]
     Indication: LIVER DISORDER
     Dosage: Q15DAYS PO
     Route: 048
     Dates: start: 20090615, end: 20090727
  3. SORAFENIB [Concomitant]

REACTIONS (7)
  - DEHYDRATION [None]
  - FAILURE TO THRIVE [None]
  - HEPATIC CANCER METASTATIC [None]
  - MALIGNANT NEOPLASM PROGRESSION [None]
  - NAUSEA [None]
  - PLEURAL EFFUSION [None]
  - VOMITING [None]
